FAERS Safety Report 25611543 (Version 1)
Quarter: 2025Q3

REPORT INFORMATION
  Report Type: Spontaneous
  Country: CA (occurrence: CA)
  Receive Date: 20250728
  Receipt Date: 20250728
  Transmission Date: 20251020
  Serious: Yes (Death)
  Sender: BAUSCH AND LOMB
  Company Number: CA-BAUSCH-BH-2025-015340

PATIENT
  Age: 65 Year
  Sex: Female

DRUGS (1)
  1. RIFAXIMIN [Suspect]
     Active Substance: RIFAXIMIN
     Indication: Hepatic encephalopathy
     Dosage: BID
     Route: 048
     Dates: start: 20250613

REACTIONS (1)
  - Death [Fatal]

NARRATIVE: CASE EVENT DATE: 20250716
